FAERS Safety Report 5928034-6 (Version None)
Quarter: 2008Q4

REPORT INFORMATION
  Report Type: 
  Country: None (occurrence: None)
  Receive Date: 20081023
  Receipt Date: 20081020
  Transmission Date: 20090506
  Serious: Yes (Hospitalization)
  Sender: FDA-Public Use
  Company Number: A0734333A

PATIENT
  Age: 66 Year
  Sex: Male

DRUGS (12)
  1. FLOVENT [Suspect]
     Dosage: 2PUFF TWICE PER DAY
     Route: 055
     Dates: start: 20030101
  2. ADVAIR DISKUS 100/50 [Suspect]
     Route: 055
  3. SPIRIVA [Concomitant]
  4. VERAPAMIL [Concomitant]
  5. PRAVASTATIN [Concomitant]
  6. MUSCLE RELAXER [Concomitant]
  7. NIACIN [Concomitant]
  8. CENTRUM SILVER [Concomitant]
  9. FISH OIL [Concomitant]
  10. ASCORBIC ACID [Concomitant]
  11. NEBULIZER [Concomitant]
  12. XOPENEX [Concomitant]

REACTIONS (12)
  - BURNING SENSATION [None]
  - CONSTIPATION [None]
  - DRUG INEFFECTIVE [None]
  - DRUG INTOLERANCE [None]
  - DRY MOUTH [None]
  - DYSPNOEA [None]
  - ORAL PAIN [None]
  - PHARYNGEAL OEDEMA [None]
  - PNEUMONIA [None]
  - PRODUCT QUALITY ISSUE [None]
  - THROAT IRRITATION [None]
  - TONGUE ULCERATION [None]
